FAERS Safety Report 5088246-3 (Version None)
Quarter: 2006Q3

REPORT INFORMATION
  Report Type: 
  Country: None (occurrence: None)
  Receive Date: 20060821
  Receipt Date: 20060802
  Transmission Date: 20061208
  Serious: Yes (Hospitalization)
  Sender: FDA-Public Use
  Company Number: 228617

PATIENT
  Age: 66 Year
  Sex: 0

DRUGS (3)
  1. AVASTIN [Suspect]
     Indication: SMALL CELL LUNG CANCER STAGE UNSPECIFIED
     Dosage: 15 MG/KG, Q21D, INTRAVENOUS
     Route: 042
     Dates: start: 20060608
  2. CISPLATIN [Suspect]
     Indication: SMALL CELL LUNG CANCER STAGE UNSPECIFIED
     Dosage: 60 MG, Q21D, INTRAVENOUS
     Route: 042
     Dates: start: 20060608
  3. ETOPOSIDE [Suspect]
     Indication: SMALL CELL LUNG CANCER STAGE UNSPECIFIED
     Dosage: 120 MG/M2, 3PER21D, INTRAVENOUS
     Route: 042
     Dates: start: 20060608

REACTIONS (2)
  - HAEMOPTYSIS [None]
  - PNEUMONIA [None]
